FAERS Safety Report 6970086-9 (Version None)
Quarter: 2010Q3

REPORT INFORMATION
  Report Type: 
  Country: None (occurrence: None)
  Receive Date: 20100903
  Receipt Date: 20100823
  Transmission Date: 20110219
  Serious: Yes (Hospitalization)
  Sender: FDA-Public Use
  Company Number: GB-ACCORD-005945

PATIENT
  Age: 81 Year
  Sex: Male

DRUGS (14)
  1. SIMVASTATIN [Suspect]
     Indication: PRODUCT USED FOR UNKNOWN INDICATION
     Dosage: 40 MG ORAL
     Route: 048
     Dates: start: 20100806, end: 20100908
  2. ADALAT (ADALAT) [Concomitant]
  3. ASPIRIN [Concomitant]
  4. ATENOLOL [Concomitant]
  5. CANDESARTAN CILEXETIL [Concomitant]
  6. CIMETIDINE [Concomitant]
  7. CLOPIDOGREL [Concomitant]
  8. FUROSEMIDE [Concomitant]
  9. GLIPIZIDE [Concomitant]
  10. HYDROXOCOBALAMIN (HYDROXOCOBALAMIN) [Concomitant]
  11. MULTIVITAMIN (MULTIVITAMIIN) [Concomitant]
  12. ACETAMINOPHEN [Concomitant]
  13. QUININE SULPHATE (QUININE SULPHATE) [Concomitant]
  14. RANITIDINE [Concomitant]

REACTIONS (5)
  - ALANINE AMINOTRANSFERASE INCREASED [None]
  - BLOOD ALKALINE PHOSPHATASE INCREASED [None]
  - DECREASED APPETITE [None]
  - LIVER FUNCTION TEST ABNORMAL [None]
  - NAUSEA [None]
